FAERS Safety Report 5743112-2 (Version None)
Quarter: 2008Q2

REPORT INFORMATION
  Report Type: 
  Country: None (occurrence: None)
  Receive Date: 20080519
  Receipt Date: 20080327
  Transmission Date: 20081010
  Serious: Yes (Hospitalization)
  Sender: FDA-Public Use
  Company Number: FR-SANOFI-SYNTHELABO-A02200801010

PATIENT
  Age: 64 Year
  Sex: Male

DRUGS (12)
  1. ISOPTIN [Suspect]
     Indication: HYPERTENSION
     Route: 048
  2. PROGRAF [Suspect]
     Indication: RENAL TRANSPLANT
     Route: 048
  3. ALLOPURINOL [Suspect]
     Indication: GOUT
     Route: 048
  4. MYFORTIC [Suspect]
     Indication: RENAL TRANSPLANT
     Route: 048
  5. SOLUPRED [Suspect]
     Indication: RENAL TRANSPLANT
     Route: 048
  6. PRAVASTATIN SODIUM [Suspect]
     Indication: DYSLIPIDAEMIA
     Route: 048
  7. XATRAL [Suspect]
     Indication: BENIGN PROSTATIC HYPERPLASIA
     Route: 048
  8. ZOLPIDEM TARTRATE [Concomitant]
     Dosage: UNK
     Route: 048
  9. KAYEXALATE [Concomitant]
     Dosage: UNK
     Route: 048
  10. LASILIX [Concomitant]
     Dosage: UNK
     Route: 048
  11. ASPIRIN [Concomitant]
     Dosage: UNK
     Route: 048
  12. NEXIUM [Suspect]
     Indication: GASTROOESOPHAGEAL REFLUX DISEASE
     Route: 048

REACTIONS (1)
  - INTERSTITIAL LUNG DISEASE [None]
